FAERS Safety Report 11374555 (Version 1)
Quarter: 2015Q3

REPORT INFORMATION
  Report Type: Report from Study
  Country: US (occurrence: US)
  Receive Date: 20150813
  Receipt Date: 20150813
  Transmission Date: 20151125
  Serious: No
  Sender: FDA-Public Use
  Company Number: PHEH2015US009468

PATIENT
  Age: 43 Year
  Sex: Male

DRUGS (2)
  1. COSENTYX [Suspect]
     Active Substance: SECUKINUMAB
     Indication: PSORIASIS
     Dosage: 300 MG, QW
     Route: 058
     Dates: start: 20150512
  2. RABIES VACCINE [Suspect]
     Active Substance: RABIES VACCINE
     Indication: ANIMAL BITE
     Route: 065

REACTIONS (5)
  - Rhinorrhoea [Recovering/Resolving]
  - Cough [Recovering/Resolving]
  - Injection site bruising [Unknown]
  - Nasal congestion [Recovering/Resolving]
  - Off label use [Unknown]

NARRATIVE: CASE EVENT DATE: 20150512
